FAERS Safety Report 16628142 (Version 1)
Quarter: 2019Q3

REPORT INFORMATION
  Report Type: Spontaneous
  Country: US (occurrence: US)
  Receive Date: 20190724
  Receipt Date: 20190724
  Transmission Date: 20191004
  Serious: Yes (Death, Life-Threatening, Hospitalization)
  Sender: FDA-Public Use
  Company Number: None

PATIENT
  Age: 72 Year
  Sex: Male
  Weight: 70 kg

DRUGS (3)
  1. CARBOPLATIN INTRAVENOUS SOLUTION [Concomitant]
     Dates: start: 20190620
  2. KEYTRUDA [Suspect]
     Active Substance: PEMBROLIZUMAB
     Indication: NON-SMALL CELL LUNG CANCER METASTATIC
     Dosage: ?          OTHER FREQUENCY:ONCE;?
     Route: 042
     Dates: start: 20190620
  3. PEMETREXED INTRAVENOUS SOLUTION [Concomitant]
     Dates: start: 20190620

REACTIONS (9)
  - Stress cardiomyopathy [None]
  - Diarrhoea [None]
  - Dehydration [None]
  - Ejection fraction decreased [None]
  - Supraventricular tachycardia [None]
  - Cardiac arrest [None]
  - Coronary vascular graft occlusion [None]
  - Myocarditis [None]
  - Pleural effusion [None]

NARRATIVE: CASE EVENT DATE: 20190718
